FAERS Safety Report 8156274-7 (Version None)
Quarter: 2012Q1

REPORT INFORMATION
  Report Type: 
  Country: None (occurrence: None)
  Receive Date: 20120103
  Receipt Date: 20111004
  Transmission Date: 20120608
  Serious: No
  Sender: FDA-Public Use
  Company Number: AE-2011-002066

PATIENT
  Sex: Female

DRUGS (3)
  1. INCIVEK [Suspect]
     Dosage: ORAL
     Route: 048
     Dates: start: 20110924
  2. RIBAVIRIN [Concomitant]
  3. INTERFERON [Concomitant]

REACTIONS (2)
  - VOMITING [None]
  - MALAISE [None]
